FAERS Safety Report 9752418 (Version 1)
Quarter: 2013Q4

REPORT INFORMATION
  Report Type: Spontaneous
  Country: US (occurrence: US)
  Receive Date: 20131213
  Receipt Date: 20131213
  Transmission Date: 20140711
  Serious: Yes (Other)
  Sender: FDA-Public Use
  Company Number: US-PFIZER INC-2013354117

PATIENT
  Age: 80 Year
  Sex: Male

DRUGS (4)
  1. CARDURA [Suspect]
     Indication: BENIGN PROSTATIC HYPERPLASIA
     Dosage: UNK
  2. NEURONTIN [Interacting]
     Indication: NEUROPATHY PERIPHERAL
     Dosage: UNK
  3. LIPITOR [Concomitant]
     Dosage: UNK
  4. GLIPIZIDE [Concomitant]
     Dosage: UNK

REACTIONS (5)
  - Haemorrhage [Unknown]
  - Fall [Unknown]
  - Drug interaction [Unknown]
  - Asthenia [Unknown]
  - Syncope [Unknown]
